FAERS Safety Report 16490349 (Version 3)
Quarter: 2019Q3

REPORT INFORMATION
  Report Type: Spontaneous
  Country: PT (occurrence: PT)
  Receive Date: 20190628
  Receipt Date: 20190718
  Transmission Date: 20191004
  Serious: Yes (Hospitalization, Other)
  Sender: FDA-Public Use
  Company Number: PT-AUROBINDO-AUR-APL-2019-037191

PATIENT

DRUGS (10)
  1. CLOZAPINE. [Suspect]
     Active Substance: CLOZAPINE
     Indication: SCHIZOPHRENIA
     Dosage: TITRATED TO TARGET DOSE OF 300 MG EVERY DAY
     Route: 065
  2. CLOZAPINE. [Suspect]
     Active Substance: CLOZAPINE
     Dosage: 100 MILLIGRAM, FOR 2 HOURS
     Route: 065
  3. PROPOFOL. [Concomitant]
     Active Substance: PROPOFOL
     Indication: ANAESTHESIA
     Dosage: 100 MILLIGRAM
     Route: 042
  4. CLOZAPINE. [Suspect]
     Active Substance: CLOZAPINE
     Dosage: 200 MILLIGRAM, FOR 2 HOURS
     Route: 065
  5. OXAZEPAM. [Suspect]
     Active Substance: OXAZEPAM
     Indication: SCHIZOPHRENIA
     Dosage: 15 MILLIGRAM FOR 8 HOUR
     Route: 065
  6. ZUCLOPENTHIXOL DECANOATE [Concomitant]
     Active Substance: ZUCLOPENTHIXOL DECANOATE
     Indication: SCHIZOPHRENIA
     Dosage: UNK
     Route: 065
  7. SUXAMETHONIUM [Concomitant]
     Active Substance: SUCCINYLCHOLINE
     Indication: NEUROMUSCULAR BLOCKADE
     Dosage: 75 MILLIGRAM
     Route: 042
  8. FLUPHENAZINE DECANOATE. [Concomitant]
     Active Substance: FLUPHENAZINE DECANOATE
     Indication: SCHIZOPHRENIA
     Dosage: 50 MILLIGRAM
     Route: 065
  9. CHLORPROMAZINE. [Concomitant]
     Active Substance: CHLORPROMAZINE
     Indication: SCHIZOPHRENIA
     Dosage: 25 MILLIGRAM
     Route: 065
  10. TRAZODONE [Concomitant]
     Active Substance: TRAZODONE HYDROCHLORIDE
     Indication: PRODUCT USED FOR UNKNOWN INDICATION
     Dosage: 50 MILLIGRAM
     Route: 065

REACTIONS (4)
  - Atrial fibrillation [Recovered/Resolved]
  - Sinus tachycardia [Recovered/Resolved]
  - Haemodynamic instability [Recovered/Resolved]
  - Therapeutic response decreased [Recovered/Resolved]
